FAERS Safety Report 9349644 (Version 2)
Quarter: 2013Q3

REPORT INFORMATION
  Report Type: Spontaneous
  Country: JP (occurrence: JP)
  Receive Date: 20130614
  Receipt Date: 20130806
  Transmission Date: 20140515
  Serious: Yes (Other)
  Sender: FDA-Public Use
  Company Number: JP-ASTRAZENECA-2013SE41128

PATIENT
  Sex: Female

DRUGS (5)
  1. ANAPEINE [Suspect]
     Indication: ANALGESIC THERAPY
     Dosage: 2 MG/ML
     Route: 008
  2. BUPRENORPHINE [Concomitant]
     Indication: ANALGESIC THERAPY
     Route: 008
  3. MEPIVACAINE HYDROCHLORIDE [Concomitant]
     Indication: EPIDURAL ANAESTHESIA
     Route: 008
  4. SODIUM BICARBONATE [Concomitant]
     Indication: EPIDURAL ANAESTHESIA
     Route: 008
  5. FENTANYL [Concomitant]
     Indication: MAINTENANCE OF ANAESTHESIA
     Route: 008

REACTIONS (1)
  - Monoplegia [Recovered/Resolved]
